FAERS Safety Report 7298954-1 (Version None)
Quarter: 2011Q1

REPORT INFORMATION
  Report Type: 
  Country: None (occurrence: None)
  Receive Date: 20110217
  Receipt Date: 20110214
  Transmission Date: 20110831
  Serious: Yes (Disabling, Other)
  Sender: FDA-Public Use
  Company Number: JP-PFIZER INC-2011032660

PATIENT
  Age: 86 Year
  Sex: Female

DRUGS (3)
  1. CRAVIT [Concomitant]
     Dosage: UNK
     Route: 047
  2. HYALEIN [Concomitant]
     Dosage: UNK
     Route: 047
  3. DETRUSITOL [Suspect]
     Indication: HYPERTONIC BLADDER
     Dosage: 4 MG, 1X/DAY
     Route: 048
     Dates: start: 20101025, end: 20101026

REACTIONS (3)
  - CONDITION AGGRAVATED [None]
  - VISUAL ACUITY REDUCED [None]
  - VISION BLURRED [None]
